FAERS Safety Report 4824722-3 (Version None)
Quarter: 2005Q4

REPORT INFORMATION
  Report Type: 
  Country: None (occurrence: None)
  Receive Date: 20051014
  Receipt Date: 20050627
  Transmission Date: 20060501
  Serious: Yes (Hospitalization)
  Sender: FDA-Public Use
  Company Number: 2005SP001616

PATIENT
  Age: 42 Year
  Sex: Female
  Weight: 99.7913 kg

DRUGS (11)
  1. LUNESTA [Suspect]
     Indication: INSOMNIA
     Dosage: 2 MG;HS;ORAL
     Route: 048
     Dates: start: 20050418, end: 20050401
  2. CLONAZEPAM [Concomitant]
  3. LAMICTAL [Concomitant]
  4. FLUVOXAMINE MALEATE [Concomitant]
  5. METAGLIP [Concomitant]
  6. ACTOS [Concomitant]
  7. ORAL CONTRACEPTIVE NOS [Concomitant]
  8. LIPITOR [Concomitant]
  9. LISINOPRIL [Concomitant]
  10. ALDACTONE [Concomitant]
  11. SYNTHROID [Concomitant]

REACTIONS (2)
  - CHEST PAIN [None]
  - DYSGEUSIA [None]
